FAERS Safety Report 9924474 (Version 2)
Quarter: 2014Q1

REPORT INFORMATION
  Report Type: Spontaneous
  Country: GB (occurrence: None)
  Receive Date: 20140220
  Receipt Date: 20140224
  Transmission Date: 20141002
  Serious: Yes (Other)
  Sender: FDA-Public Use
  Company Number: AUR-APL-2014-01832

PATIENT
  Age: 42 Year
  Sex: Male
  Weight: 62 kg

DRUGS (10)
  1. RAMIPRIL [Suspect]
     Indication: PRODUCT USED FOR UNKNOWN INDICATION
     Dates: start: 20140122
  2. CETIRIZINE (CETIRIZINE) [Concomitant]
  3. FOLIC ACID (FOLIC ACID) [Concomitant]
  4. LOPERAMIDE (LOPERAMIDE) [Concomitant]
  5. MOMETASONE (MOMETASONE) [Concomitant]
  6. MUCOGEL (ALUDROX) [Concomitant]
  7. OMEPRAZOLE (OMEPRAZOLE) [Concomitant]
  8. PRO D3 (COLECALCIFEROL) [Concomitant]
  9. QVAR (BECLOMETASONE DIPROPIONATE) [Concomitant]
  10. SALAMOL (SALBUTAMOL) [Concomitant]

REACTIONS (1)
  - Anaphylactoid reaction [None]
